FAERS Safety Report 11639397 (Version 1)
Quarter: 2015Q4

REPORT INFORMATION
  Report Type: Spontaneous
  Country: IN (occurrence: IN)
  Receive Date: 20151019
  Receipt Date: 20151019
  Transmission Date: 20160304
  Serious: Yes (Hospitalization)
  Sender: FDA-Public Use
  Company Number: IN-ACCORD-034566

PATIENT
  Age: 57 Year
  Sex: Female

DRUGS (7)
  1. FOLIC ACID. [Concomitant]
     Active Substance: FOLIC ACID
  2. CHLOROQUINE. [Concomitant]
     Active Substance: CHLOROQUINE
  3. METHOTREXATE [Suspect]
     Active Substance: METHOTREXATE
     Indication: RHEUMATOID ARTHRITIS
     Dosage: FOR SIX WEEKS
     Route: 048
  4. OMEPRAZOLE. [Concomitant]
     Active Substance: OMEPRAZOLE
  5. AMLODIPINE [Concomitant]
     Active Substance: AMLODIPINE BESYLATE
  6. ETORICOXIB [Interacting]
     Active Substance: ETORICOXIB
     Indication: ARTHRALGIA
     Dosage: FOR SIX WEEKS
     Route: 048
  7. ATORVASTATIN [Concomitant]
     Active Substance: ATORVASTATIN

REACTIONS (4)
  - Stevens-Johnson syndrome [Recovering/Resolving]
  - Deep vein thrombosis [Unknown]
  - Toxic epidermal necrolysis [Recovering/Resolving]
  - Drug interaction [Unknown]
